FAERS Safety Report 7166779-3 (Version None)
Quarter: 2010Q4

REPORT INFORMATION
  Report Type: 
  Country: None (occurrence: None)
  Receive Date: 20101213
  Receipt Date: 20101213
  Transmission Date: 20110411
  Serious: Yes (Hospitalization)
  Sender: FDA-Public Use
  Company Number: None

PATIENT
  Age: 53 Year
  Sex: Male
  Weight: 108 kg

DRUGS (15)
  1. PIOGLITAZONE [Suspect]
     Indication: INVESTIGATION
     Dosage: ONE DAILY BY MOUTH
     Route: 048
     Dates: start: 20100211
  2. ELAVIL [Concomitant]
  3. CREON [Concomitant]
  4. VOLTAREN [Concomitant]
  5. FLUNISOLIDE [Concomitant]
  6. HYOSCYAMINE [Concomitant]
  7. SKELAXIN [Concomitant]
  8. PRILOSEC [Concomitant]
  9. ACTOS [Concomitant]
  10. MIRALAX [Concomitant]
  11. MIRAPEX [Concomitant]
  12. IMITREX [Concomitant]
  13. TRAMADOL [Concomitant]
  14. CELEXA [Concomitant]
  15. EFFEXOR [Concomitant]

REACTIONS (5)
  - ABDOMINAL PAIN LOWER [None]
  - BACK PAIN [None]
  - CHEST PAIN [None]
  - MUSCLE STRAIN [None]
  - RECTAL HAEMORRHAGE [None]
